FAERS Safety Report 5009217-9 (Version None)
Quarter: 2006Q2

REPORT INFORMATION
  Report Type: 
  Country: None (occurrence: None)
  Receive Date: 20060519
  Receipt Date: 20060508
  Transmission Date: 20061013
  Serious: Yes (Death, Hospitalization, Other)
  Sender: FDA-Public Use
  Company Number: 27390

PATIENT
  Age: 45 Year
  Sex: Male

DRUGS (1)
  1. BLEOMYCIN [Suspect]
     Indication: HODGKIN'S DISEASE
     Dosage: 19 MG IV
     Route: 042
     Dates: start: 20051112, end: 20060223

REACTIONS (4)
  - DISEASE PROGRESSION [None]
  - DYSPNOEA [None]
  - LUNG DISORDER [None]
  - PULMONARY FIBROSIS [None]
